FAERS Safety Report 5306119-5 (Version None)
Quarter: 2007Q2

REPORT INFORMATION
  Report Type: 
  Country: None (occurrence: None)
  Receive Date: 20070424
  Receipt Date: 20070228
  Transmission Date: 20071010
  Serious: Yes (Death)
  Sender: FDA-Public Use
  Company Number: US-BRISTOL-MYERS SQUIBB COMPANY-13695580

PATIENT
  Age: 58 Year
  Sex: Male

DRUGS (3)
  1. ERBITUX [Suspect]
  2. TAXOL [Suspect]
  3. PARAPLATIN [Suspect]

REACTIONS (1)
  - MALIGNANT NEOPLASM PROGRESSION [None]
